FAERS Safety Report 6257153-2 (Version None)
Quarter: 2009Q3

REPORT INFORMATION
  Report Type: 
  Country: None (occurrence: None)
  Receive Date: 20090706
  Receipt Date: 20090406
  Transmission Date: 20100115
  Serious: No
  Sender: FDA-Public Use
  Company Number: US-BAYER-200917969NA

PATIENT
  Age: 20 Year
  Sex: Male

DRUGS (1)
  1. ULTRAVIST 240 [Suspect]
     Indication: COMPUTERISED TOMOGRAM ABDOMEN
     Dosage: TOTAL DAILY DOSE: 200 ML
     Dates: start: 20090304, end: 20090304

REACTIONS (1)
  - ABDOMINAL PAIN UPPER [None]
